FAERS Safety Report 18816609 (Version 1)
Quarter: 2021Q1

REPORT INFORMATION
  Report Type: Report from Study
  Country: ES (occurrence: ES)
  Receive Date: 20210201
  Receipt Date: 20210201
  Transmission Date: 20210419
  Serious: Yes (Death, Hospitalization)
  Sender: FDA-Public Use
  Company Number: ES-MYLANLABS-2020M1067905

PATIENT
  Age: 72 Year
  Sex: Male

DRUGS (6)
  1. HYDROXYCHLOROQUINE [Suspect]
     Active Substance: HYDROXYCHLOROQUINE
     Dosage: 200 MILLIGRAM, BID FOR 5?10 DAYS
     Route: 048
     Dates: start: 2020
  2. MYCOPHENOLATE MOFETIL. [Suspect]
     Active Substance: MYCOPHENOLATE MOFETIL
     Indication: IMMUNOSUPPRESSANT DRUG THERAPY
     Dosage: UNK
     Route: 065
     Dates: end: 2020
  3. HYDROXYCHLOROQUINE [Suspect]
     Active Substance: HYDROXYCHLOROQUINE
     Indication: COVID-19
     Dosage: 400 MILLIGRAM, BID HYDROXYCHLOROQUINE 400MG TWICE DAILY FOR FIRST 24H
     Route: 048
     Dates: start: 2020
  4. INTERFERON BETA NOS [Suspect]
     Active Substance: INTERFERON BETA
     Indication: COVID-19
     Dosage: 250 MICROGRAM EVERY 48H
     Route: 058
     Dates: start: 2020
  5. LOPINAVIR/RITONAVIR [Suspect]
     Active Substance: LOPINAVIR\RITONAVIR
     Indication: COVID-19
     Dosage: 1 DOSAGE FORM, BID
     Route: 048
     Dates: start: 2020
  6. EVEROLIMUS. [Suspect]
     Active Substance: EVEROLIMUS
     Indication: IMMUNOSUPPRESSANT DRUG THERAPY
     Dosage: UNK
     Route: 065
     Dates: end: 2020

REACTIONS (6)
  - Respiratory failure [Fatal]
  - Off label use [Unknown]
  - COVID-19 pneumonia [Fatal]
  - Acute respiratory distress syndrome [Fatal]
  - Renal failure [Unknown]
  - Delirium [Unknown]

NARRATIVE: CASE EVENT DATE: 2020
